FAERS Safety Report 5088128-7 (Version None)
Quarter: 2006Q3

REPORT INFORMATION
  Report Type: 
  Country: None (occurrence: None)
  Receive Date: 20060727
  Receipt Date: 20060531
  Transmission Date: 20061208
  Serious: Yes (Other)
  Sender: FDA-Public Use
  Company Number: 2006025135

PATIENT
  Age: 81 Year
  Sex: Female

DRUGS (14)
  1. LYRICA [Suspect]
     Indication: FIBROMYALGIA
     Dosage: 150 MG (50 MG, 3 IN 1 D)
     Route: 065
     Dates: start: 20051122, end: 20051201
  2. MEDROL [Suspect]
     Indication: ILL-DEFINED DISORDER
     Dosage: UNKNOWN
     Route: 065
     Dates: start: 20060101
  3. ARTHROTEC [Suspect]
     Indication: ILL-DEFINED DISORDER
     Dosage: UNKNOWN
     Route: 065
     Dates: start: 20051214
  4. ALPRAZOLAM [Suspect]
     Indication: ILL-DEFINED DISORDER
     Dosage: 0.25 MG
     Route: 065
     Dates: start: 20051218
  5. MONTELUKAST (MONTELUKAST ) [Suspect]
     Indication: ILL-DEFINED DISORDER
     Dosage: 10 MG
     Route: 065
     Dates: start: 20051218
  6. PREMARIN [Suspect]
     Indication: ILL-DEFINED DISORDER
     Dosage: 0.625 MG
     Route: 065
     Dates: start: 20051218
  7. BIAXIN [Concomitant]
  8. NEXIUM [Concomitant]
  9. OXYCONTIN [Concomitant]
  10. HYDROCODONE (HYDROCODONE) [Concomitant]
  11. ACTONEL [Concomitant]
  12. AMBIEN [Concomitant]
  13. EFFEXOR XR [Concomitant]
  14. TIZANIDINE HCL [Concomitant]

REACTIONS (5)
  - DISORIENTATION [None]
  - MOVEMENT DISORDER [None]
  - PAIN [None]
  - UNEVALUABLE EVENT [None]
  - UPPER RESPIRATORY TRACT INFECTION [None]
